FAERS Safety Report 5256717-2 (Version None)
Quarter: 2007Q1

REPORT INFORMATION
  Report Type: 
  Country: None (occurrence: None)
  Receive Date: 20070306
  Receipt Date: 20070226
  Transmission Date: 20070707
  Serious: Yes (Hospitalization)
  Sender: FDA-Public Use
  Company Number: US-ELI_LILLY_AND_COMPANY-US200612004654

PATIENT
  Age: 78 Year
  Sex: Female

DRUGS (2)
  1. HUMATROPE [Suspect]
     Indication: ACROMEGALY
     Dosage: 0.3 MG, 4/W
     Dates: start: 20030101
  2. HUMATROPE [Suspect]
     Dosage: 0.2 MG, 3/W
     Dates: start: 20030101

REACTIONS (9)
  - ANAEMIA [None]
  - ASTHENIA [None]
  - CARDIAC DISORDER [None]
  - CHEST PAIN [None]
  - FAECES DISCOLOURED [None]
  - FEELING ABNORMAL [None]
  - HAEMORRHAGE [None]
  - PHARMACEUTICAL PRODUCT COMPLAINT [None]
  - PULMONARY EMBOLISM [None]
